FAERS Safety Report 6179301-5 (Version None)
Quarter: 2009Q2

REPORT INFORMATION
  Report Type: 
  Country: None (occurrence: None)
  Receive Date: 20090430
  Receipt Date: 20090420
  Transmission Date: 20091009
  Serious: Yes (Hospitalization)
  Sender: FDA-Public Use
  Company Number: 235243K07USA

PATIENT
  Age: 58 Year
  Sex: Female
  Weight: 72 kg

DRUGS (7)
  1. REBIF [Suspect]
     Indication: MULTIPLE SCLEROSIS
     Dosage: 44 MCG, 3 IN 1 WEEKS, SUBCUTANEOUS
     Route: 058
     Dates: start: 20041209
  2. DIOVAN [Concomitant]
  3. COUMADIN [Concomitant]
  4. ZOLOFT [Concomitant]
  5. VESICARE [Concomitant]
  6. ALLEGRA [Concomitant]
  7. OMEPRAZOLE [Concomitant]

REACTIONS (3)
  - AUTOIMMUNE THYROIDITIS [None]
  - COLON CANCER STAGE III [None]
  - LUNG INFECTION [None]
